FAERS Safety Report 8287412-3 (Version None)
Quarter: 2012Q2

REPORT INFORMATION
  Report Type: 
  Country: None (occurrence: None)
  Receive Date: 20120416
  Receipt Date: 20120411
  Transmission Date: 20120825
  Serious: Yes (Life-Threatening, Other)
  Sender: FDA-Public Use
  Company Number: BR-ASTRAZENECA-2012SE23954

PATIENT
  Age: 21 Year
  Sex: Female
  Weight: 65 kg

DRUGS (3)
  1. SEROQUEL XR [Suspect]
     Dosage: 10 SEROQUEL XRO 50 MG TABLETS
     Route: 048
  2. ALCOHOLIC BEVERAGE [Concomitant]
  3. SEROQUEL XR [Suspect]
     Indication: DEPRESSION
     Route: 048

REACTIONS (5)
  - SUICIDE ATTEMPT [None]
  - STUPOR [None]
  - VOMITING [None]
  - INTENTIONAL DRUG MISUSE [None]
  - ALCOHOL POISONING [None]
